FAERS Safety Report 10884641 (Version 2)
Quarter: 2015Q2

REPORT INFORMATION
  Report Type: Not Available
  Country: FR (occurrence: FR)
  Receive Date: 20150304
  Receipt Date: 20150422
  Transmission Date: 20150821
  Serious: Yes (Hospitalization, Disabling)
  Sender: FDA-Public Use
  Company Number: FR-BEH-2015049194

PATIENT
  Age: 68 Year
  Sex: Female
  Weight: 53.2 kg

DRUGS (2)
  1. CYMBALTA [Concomitant]
     Active Substance: DULOXETINE HYDROCHLORIDE
  2. PRIVIGEN [Suspect]
     Active Substance: HUMAN IMMUNOGLOBULIN G
     Indication: POLYNEUROPATHY
     Route: 042
     Dates: start: 20150202, end: 20150206

REACTIONS (6)
  - Ataxia [Recovering/Resolving]
  - Blood pressure systolic increased [Unknown]
  - Motor dysfunction [Recovered/Resolved]
  - Cerebrovascular accident [Recovering/Resolving]
  - Ischaemic stroke [Recovering/Resolving]
  - Hemiparesis [Not Recovered/Not Resolved]

NARRATIVE: CASE EVENT DATE: 20150206
